FAERS Safety Report 5209298-3 (Version None)
Quarter: 2006Q4

REPORT INFORMATION
  Report Type: 
  Country: None (occurrence: None)
  Receive Date: 20061101
  Receipt Date: 20061010
  Transmission Date: 20070319
  Serious: No
  Sender: FDA-Public Use
  Company Number: SPV1-2006-01147

PATIENT
  Age: 66 Year
  Sex: Male
  Weight: 86.2 kg

DRUGS (3)
  1. FOSRENOL [Suspect]
     Indication: HYPERPHOSPHATAEMIA
     Dosage: 1000 MG, 5X'S PER DAY, ORAL
     Route: 048
     Dates: start: 20050101
  2. ATENOLOL [Concomitant]
  3. LIPITOR [Concomitant]

REACTIONS (2)
  - BLOOD PHOSPHORUS INCREASED [None]
  - PRESCRIBED OVERDOSE [None]
